FAERS Safety Report 10335471 (Version 3)
Quarter: 2014Q4

REPORT INFORMATION
  Report Type: Spontaneous
  Country: JP (occurrence: JP)
  Receive Date: 20140723
  Receipt Date: 20141226
  Transmission Date: 20150528
  Serious: Yes (Hospitalization)
  Sender: FDA-Public Use
  Company Number: PHHY2014JP086738

PATIENT
  Age: 30 Year
  Sex: Male
  Weight: 68 kg

DRUGS (13)
  1. VOLTAREN [Suspect]
     Active Substance: DICLOFENAC SODIUM
     Indication: ANALGESIC THERAPY
  2. LOXONIN [Suspect]
     Active Substance: LOXOPROFEN SODIUM
     Indication: ANALGESIC THERAPY
     Dosage: 60 MG, PRN, FOR 10 DOSES
     Route: 048
     Dates: start: 20110824, end: 20110827
  3. LOXONIN [Suspect]
     Active Substance: LOXOPROFEN SODIUM
     Indication: PERICORONITIS
     Dosage: 60 MG, TID, FOR 7 DAYS
     Route: 048
     Dates: start: 20110822, end: 20110824
  4. VOLTAREN [Suspect]
     Active Substance: DICLOFENAC SODIUM
     Indication: PERICORONITIS
     Route: 054
  5. VOLTAREN [Suspect]
     Active Substance: DICLOFENAC SODIUM
     Dosage: 50 MG, UNK
     Route: 054
  6. VOLTAREN [Suspect]
     Active Substance: DICLOFENAC SODIUM
     Indication: TOOTHACHE
  7. ADEFURONIC [Suspect]
     Active Substance: DICLOFENAC SODIUM
     Indication: ANALGESIC THERAPY
  8. ADEFURONIC [Suspect]
     Active Substance: DICLOFENAC SODIUM
     Indication: PERICORONITIS
     Dosage: 100 MG, UNK
     Route: 048
     Dates: start: 20110817, end: 20110821
  9. FLOMOX//CEFCAPENE PIVOXIL HYDROCHLORIDE [Concomitant]
     Active Substance: CEFCAPENE PIVOXIL HYDROCHLORIDE HYDRATE
     Indication: PERICORONITIS
     Dosage: 100 MG, UNK
     Route: 048
     Dates: start: 20110817
  10. CRAVIT [Concomitant]
     Active Substance: LEVOFLOXACIN
     Indication: PERICORONITIS
     Dosage: 500 MG, UNK
     Route: 065
     Dates: start: 20110822
  11. VOLTAREN [Suspect]
     Active Substance: DICLOFENAC SODIUM
     Dosage: 50 MG, QID
     Route: 054
  12. VOLTAREN [Suspect]
     Active Substance: DICLOFENAC SODIUM
     Indication: PERICORONITIS
     Dosage: 200 MG, DAILY
     Route: 054
     Dates: start: 20110822, end: 20110827
  13. ACETAMINOPHEN. [Concomitant]
     Active Substance: ACETAMINOPHEN
     Indication: PROCEDURAL PAIN
     Dosage: 600 MG, UNK
     Route: 065

REACTIONS (8)
  - Overdose [Unknown]
  - Abdominal pain [Unknown]
  - Pain [Unknown]
  - Gastrointestinal disorder [Unknown]
  - Peritonitis [Unknown]
  - Abdominal tenderness [Unknown]
  - Duodenal ulcer perforation [Recovering/Resolving]
  - Abdominal pain upper [Unknown]

NARRATIVE: CASE EVENT DATE: 20110827
